FAERS Safety Report 9362979 (Version 2)
Quarter: 2013Q3

REPORT INFORMATION
  Report Type: Report from Study
  Country: CA (occurrence: CA)
  Receive Date: 20130624
  Receipt Date: 20130703
  Transmission Date: 20140515
  Serious: Yes (Hospitalization, Other)
  Sender: FDA-Public Use
  Company Number: CA-ROCHE-1148818

PATIENT
  Age: 57 Year
  Sex: Male
  Weight: 110 kg

DRUGS (16)
  1. AVASTIN [Suspect]
     Indication: GLIOBLASTOMA
     Route: 042
     Dates: start: 20120703, end: 20121221
  2. DILANTIN [Suspect]
     Indication: PRODUCT USED FOR UNKNOWN INDICATION
     Route: 065
  3. LANSOPRAZOLE [Concomitant]
     Route: 048
     Dates: start: 2011
  4. DEXAMETHASONE [Concomitant]
     Route: 048
     Dates: start: 2011
  5. RABEPRAZOLE [Concomitant]
  6. ASA [Concomitant]
     Indication: MYOCARDIAL INFARCTION
     Route: 048
  7. PLAVIX [Concomitant]
  8. FUROSEMIDE [Concomitant]
     Route: 048
  9. FUROSEMIDE [Concomitant]
     Dosage: DOSE INCREASED
     Route: 065
  10. ATORVASTATIN [Concomitant]
     Route: 048
  11. COVERSYL [Concomitant]
  12. NITRO PATCH [Concomitant]
     Route: 062
  13. FENTANYL PATCH [Concomitant]
     Route: 062
  14. OXYCOCET [Concomitant]
  15. CLOPIDOGREL [Concomitant]
     Indication: MYOCARDIAL INFARCTION
     Route: 048
  16. GABAPENTIN [Concomitant]
     Route: 048
     Dates: start: 2011

REACTIONS (5)
  - Cardiac failure congestive [Recovering/Resolving]
  - Cellulitis [Recovered/Resolved]
  - Convulsion [Unknown]
  - Drug hypersensitivity [Unknown]
  - Weight increased [Not Recovered/Not Resolved]
